FAERS Safety Report 21632771 (Version 1)
Quarter: 2022Q4

REPORT INFORMATION
  Report Type: Report from Study
  Country: AR (occurrence: AR)
  Receive Date: 20221123
  Receipt Date: 20221123
  Transmission Date: 20230113
  Serious: Yes (Other)
  Sender: FDA-Public Use
  Company Number: AR-002147023-NVSC2022AR262104

PATIENT
  Sex: Female

DRUGS (1)
  1. AFINITOR [Suspect]
     Active Substance: EVEROLIMUS
     Indication: Breast cancer metastatic
     Dosage: 10 MG, QOD
     Route: 048
     Dates: start: 20221017

REACTIONS (4)
  - Metastases to bone [Unknown]
  - Pain in extremity [Unknown]
  - Arthralgia [Unknown]
  - Inappropriate schedule of product administration [Unknown]
